FAERS Safety Report 4431991-0 (Version None)
Quarter: 2004Q3

REPORT INFORMATION
  Report Type: 
  Country: None (occurrence: None)
  Receive Date: 20040819
  Receipt Date: 20040805
  Transmission Date: 20050211
  Serious: Yes (Hospitalization)
  Sender: FDA-Public Use
  Company Number: USA-2004-0016253

PATIENT
  Age: 7 Month
  Sex: Female

DRUGS (2)
  1. CEFDITOREN PIVOXIL (SIMILAR TO NDA 21-222) (CEFDITOREN PIVOXIL) OTHER [Suspect]
     Indication: UPPER RESPIRATORY TRACT INFECTION
     Dosage: 20 MG, SINGLE, ORAL
     Route: 048
     Dates: start: 20040715, end: 20040715
  2. TRANSAMIN (TRANEXAMIC ACID) [Concomitant]

REACTIONS (1)
  - ANAPHYLACTIC SHOCK [None]
